FAERS Safety Report 5961562-6 (Version None)
Quarter: 2008Q4

REPORT INFORMATION
  Report Type: 
  Country: None (occurrence: None)
  Receive Date: 20081121
  Receipt Date: 20081113
  Transmission Date: 20090506
  Serious: Yes (Life-Threatening, Hospitalization)
  Sender: FDA-Public Use
  Company Number: B0545051A

PATIENT
  Age: 41 Year
  Sex: Male

DRUGS (11)
  1. ZIAGEN [Suspect]
     Indication: HIV INFECTION
     Dosage: 600MG PER DAY
     Route: 048
     Dates: start: 20081010, end: 20081019
  2. KALETRA [Suspect]
     Indication: HIV INFECTION
     Dosage: 250MG PER DAY
     Route: 065
     Dates: start: 20081010, end: 20081019
  3. VIREAD [Suspect]
     Indication: HIV INFECTION
     Dosage: 245MG PER DAY
     Route: 048
     Dates: start: 20081010, end: 20081019
  4. TENOFOVIR [Concomitant]
     Indication: HIV INFECTION
     Route: 065
  5. LOPINAVIR AND RITONAVIR [Concomitant]
     Indication: HIV INFECTION
     Route: 065
  6. ANTICOAGULANTS (UNSPECIFIED) [Concomitant]
     Indication: PROPHYLAXIS
     Route: 065
  7. TRAMADOL HCL [Concomitant]
  8. DELTACORTENE [Concomitant]
  9. LORAZEPAM [Concomitant]
  10. NEXIUM [Concomitant]
  11. UNKNOWN DRUG [Concomitant]

REACTIONS (2)
  - MYOCARDIAL INFARCTION [None]
  - THERAPEUTIC RESPONSE UNEXPECTED [None]
